FAERS Safety Report 9692233 (Version 1)
Quarter: 2013Q4

REPORT INFORMATION
  Report Type: Spontaneous
  Country: US (occurrence: US)
  Receive Date: 20131118
  Receipt Date: 20131118
  Transmission Date: 20140711
  Serious: No
  Sender: FDA-Public Use
  Company Number: US-B.I. PHARMACEUTICALS,INC./RIDGEFIELD-2013-BI-36125BP

PATIENT
  Sex: Male
  Weight: 127 kg

DRUGS (1)
  1. COMBIVENT [Suspect]
     Indication: WHEEZING
     Dosage: STRENGTH: 18 MCG / 103 MCG; DAILY DOSE: 216MCG/1236MCG
     Route: 055
     Dates: start: 2010, end: 20130904

REACTIONS (1)
  - Off label use [Recovered/Resolved]
